FAERS Safety Report 7059984-8 (Version None)
Quarter: 2010Q4

REPORT INFORMATION
  Report Type: 
  Country: None (occurrence: None)
  Receive Date: 20101025
  Receipt Date: 20101015
  Transmission Date: 20110411
  Serious: Yes (Life-Threatening, Other)
  Sender: FDA-Public Use
  Company Number: JP-JNJFOC-20101004155

PATIENT
  Sex: Male

DRUGS (6)
  1. CRAVIT [Suspect]
     Indication: BRONCHITIS
     Route: 048
  2. CRAVIT [Suspect]
     Indication: ASTHMA
     Route: 048
  3. CLARITHROMYCIN [Suspect]
     Indication: PRODUCT USED FOR UNKNOWN INDICATION
     Route: 065
  4. HUSCODE [Concomitant]
     Indication: BRONCHITIS
     Route: 048
  5. BRONICA [Concomitant]
     Indication: ASTHMA
     Route: 048
  6. THEO-DUR [Concomitant]
     Indication: ASTHMA
     Route: 048

REACTIONS (7)
  - COUGH [None]
  - DYSPNOEA [None]
  - ECZEMA [None]
  - SPUTUM DISCOLOURED [None]
  - TACHYCARDIA [None]
  - URTICARIA [None]
  - WHEEZING [None]
